FAERS Safety Report 18211494 (Version 2)
Quarter: 2020Q3

REPORT INFORMATION
  Report Type: Report from Study
  Country: None (occurrence: US)
  Receive Date: 20200831
  Receipt Date: 20200924
  Transmission Date: 20201103
  Serious: Yes (Other)
  Sender: FDA-Public Use
  Company Number: US-ABBVIE-20K-163-3543587-00

PATIENT
  Age: 75 Year
  Sex: Male

DRUGS (4)
  1. VENCLEXTA [Suspect]
     Active Substance: VENETOCLAX
     Indication: CHRONIC LYMPHOCYTIC LEUKAEMIA
     Dosage: TAKE 20MG(2X10MG TABS) BY MOUTH EVERY DAY ON WEEK 1.
     Route: 048
  2. VENCLEXTA [Suspect]
     Active Substance: VENETOCLAX
     Dosage: 200MG(2X100MG TABS) DAILY WEEK 4.
     Route: 048
  3. VENCLEXTA [Suspect]
     Active Substance: VENETOCLAX
     Dosage: THEN, 50MG(1X50MG TAB) DAILY BY MOUTH WEEK 2.
     Route: 048
  4. VENCLEXTA [Suspect]
     Active Substance: VENETOCLAX
     Dosage: THEN, 100MG(1X100MG TAB) BY MOUTH DAILY WEEK 3.
     Route: 048

REACTIONS (3)
  - Dyspnoea [Unknown]
  - Cardiac pacemaker insertion [Unknown]
  - Fatigue [Unknown]

NARRATIVE: CASE EVENT DATE: 20200818
